FAERS Safety Report 19620281 (Version 1)
Quarter: 2021Q3

REPORT INFORMATION
  Report Type: Spontaneous
  Country: ES (occurrence: ES)
  Receive Date: 20210728
  Receipt Date: 20210728
  Transmission Date: 20211014
  Serious: Yes (Other)
  Sender: FDA-Public Use
  Company Number: ES-ROCHE-2876204

PATIENT
  Sex: Male

DRUGS (2)
  1. LANTANON (MIANSERIN HYDROCHLORIDE) [Suspect]
     Active Substance: MIANSERIN HYDROCHLORIDE
     Indication: DEPRESSION
     Route: 048
     Dates: start: 2006
  2. RIVOTRIL [Suspect]
     Active Substance: CLONAZEPAM
     Indication: PRODUCT USED FOR UNKNOWN INDICATION
     Route: 065

REACTIONS (11)
  - Gastrointestinal candidiasis [Unknown]
  - Wisdom teeth removal [Unknown]
  - Inguinal hernia repair [Unknown]
  - Syncope [Unknown]
  - Therapeutic product effect incomplete [Unknown]
  - Feeling abnormal [Unknown]
  - Somnolence [Recovered/Resolved]
  - Weight decreased [Unknown]
  - Dysbiosis [Unknown]
  - Prostatic operation [Unknown]
  - Mesenteric panniculitis [Unknown]

NARRATIVE: CASE EVENT DATE: 2018
